FAERS Safety Report 9082415 (Version 1)
Quarter: 2013Q1

REPORT INFORMATION
  Report Type: Report from Study
  Country: US (occurrence: US)
  Receive Date: 20130130
  Receipt Date: 20130130
  Transmission Date: 20140127
  Serious: No
  Sender: FDA-Public Use
  Company Number: US-ABBOTT-12P-163-0955772-00

PATIENT
  Age: 66 Year
  Sex: Male

DRUGS (10)
  1. HUMIRA 40 MG/0.8 ML PEN [Suspect]
     Indication: PSORIASIS
     Dates: start: 20120326
  2. TRILIPIX [Concomitant]
     Indication: BLOOD CHOLESTEROL
     Dosage: 135MG DAILY
  3. TRILIPIX [Concomitant]
     Indication: BLOOD PRESSURE
  4. SIMVASTATIN [Concomitant]
     Indication: HYPERTRIGLYCERIDAEMIA
     Dosage: 40MG DAILY IN THE EVENING
  5. SIMVASTATIN [Concomitant]
     Indication: BLOOD CHOLESTEROL
  6. COREG [Concomitant]
     Indication: BLOOD PRESSURE
     Dosage: 40MG DAILY IN THE MORNING
  7. LISINOPRIL [Concomitant]
     Indication: BLOOD CHOLESTEROL
     Dosage: 40MG DAILY
  8. PLAVIX [Concomitant]
     Indication: PRODUCT USED FOR UNKNOWN INDICATION
  9. NITRO [Concomitant]
     Indication: PRODUCT USED FOR UNKNOWN INDICATION
  10. BUPROPION [Concomitant]
     Indication: DEPRESSION
     Dosage: 300MG DAILY
     Route: 048

REACTIONS (1)
  - Pain [Not Recovered/Not Resolved]
